FAERS Safety Report 6393121-8 (Version None)
Quarter: 2009Q4

REPORT INFORMATION
  Report Type: 
  Country: None (occurrence: None)
  Receive Date: 20091008
  Receipt Date: 20090929
  Transmission Date: 20100525
  Serious: Yes (Hospitalization)
  Sender: FDA-Public Use
  Company Number: CO-ELI_LILLY_AND_COMPANY-CO200909005252

PATIENT
  Sex: Male

DRUGS (10)
  1. HUMALOG [Suspect]
     Indication: TYPE 2 DIABETES MELLITUS
     Dosage: 20 IU, 3/D
     Route: 058
     Dates: start: 20090226
  2. METFORMIN [Concomitant]
     Dosage: UNK, UNKNOWN
     Route: 065
  3. LANTUS [Concomitant]
     Dosage: 60 IU, UNKNOWN
     Route: 065
  4. GEMFIBROZIL [Concomitant]
     Dosage: UNK, UNKNOWN
     Route: 065
  5. PRAZSOIN HCL [Concomitant]
     Dosage: UNK, UNKNOWN
     Route: 065
  6. ASPIRIN [Concomitant]
     Dosage: UNK, UNKNOWN
     Route: 065
  7. METOPROLOL TARTRATE [Concomitant]
     Dosage: UNK, UNKNOWN
     Route: 065
  8. CHLOROTHIAZIDE [Concomitant]
     Dosage: UNK, UNKNOWN
     Route: 065
  9. INSULIN [Concomitant]
     Dosage: UNK, UNKNOWN
     Route: 065
  10. BYETTA [Concomitant]
     Dosage: UNK, UNKNOWN
     Route: 065

REACTIONS (4)
  - HEADACHE [None]
  - HYPERGLYCAEMIA [None]
  - HYPOGLYCAEMIA [None]
  - PNEUMONIA [None]
